FAERS Safety Report 7392552-7 (Version None)
Quarter: 2011Q2

REPORT INFORMATION
  Report Type: 
  Country: None (occurrence: None)
  Receive Date: 20110404
  Receipt Date: 20110322
  Transmission Date: 20111010
  Serious: Yes (Hospitalization)
  Sender: FDA-Public Use
  Company Number: US-CELGENEUS-163-21880-11032576

PATIENT
  Age: 83 Year
  Sex: Female
  Weight: 57.476 kg

DRUGS (9)
  1. REVLIMID [Suspect]
     Indication: MULTIPLE MYELOMA
     Dosage: 10 MILLIGRAM
     Dates: start: 20100831, end: 20110223
  2. DEXAMETHASONE [Concomitant]
     Route: 065
  3. POTASSIUM CHLORIDE [Concomitant]
     Dosage: 20 MILLIEQUIVALENTS
     Route: 065
  4. COUMADIN [Concomitant]
     Route: 065
  5. CARVEDILOL [Concomitant]
     Dosage: 3.125 MILLIGRAM
     Route: 065
  6. ASPIRIN [Concomitant]
     Dosage: 325 MILLIGRAM
     Route: 065
  7. ACYCLOVIR [Concomitant]
     Dosage: 400 MILLIGRAM
     Route: 065
  8. PANTOPRAZOLE [Concomitant]
     Dosage: 40 MILLIEQUIVALENTS
     Route: 065
  9. PAROXETINE HCL [Concomitant]
     Dosage: 12.5
     Route: 065

REACTIONS (5)
  - FALL [None]
  - ANAEMIA [None]
  - FAECES DISCOLOURED [None]
  - ASTHENIA [None]
  - INTERNATIONAL NORMALISED RATIO INCREASED [None]
